FAERS Safety Report 23285757 (Version 4)
Quarter: 2024Q3

REPORT INFORMATION
  Report Type: Report from Study
  Country: IT (occurrence: IT)
  Receive Date: 20231212
  Receipt Date: 20240704
  Transmission Date: 20241016
  Serious: Yes (Other)
  Sender: NOVARTIS
  Company Number: IT-002147023-NVSC2023IT237248

PATIENT
  Age: 18 Year
  Sex: Male
  Weight: 100 kg

DRUGS (19)
  1. MEKINIST [Suspect]
     Active Substance: TRAMETINIB DIMETHYL SULFOXIDE
     Indication: Astrocytoma
     Dosage: 2 MG, QD
     Route: 048
     Dates: start: 20221203, end: 20231102
  2. MEKINIST [Suspect]
     Active Substance: TRAMETINIB DIMETHYL SULFOXIDE
     Dosage: 1.5 MG, QD
     Route: 065
  3. MEKINIST [Suspect]
     Active Substance: TRAMETINIB DIMETHYL SULFOXIDE
     Dosage: 1.5 MG, QD
     Route: 048
     Dates: start: 20231214
  4. MEKINIST [Suspect]
     Active Substance: TRAMETINIB DIMETHYL SULFOXIDE
     Dosage: 1.5 MG, QD
     Route: 048
     Dates: start: 20231215, end: 20240605
  5. MEKINIST [Suspect]
     Active Substance: TRAMETINIB DIMETHYL SULFOXIDE
     Dosage: 1.5 MG, QD
     Route: 048
     Dates: start: 20240617
  6. NIFEDIPINE [Concomitant]
     Active Substance: NIFEDIPINE
     Indication: Hypertension
     Dosage: 10 MG, QD
     Route: 065
  7. MOISTURIZING ALL CLEAR [Concomitant]
     Indication: Skin toxicity
     Dosage: UNK, PRN (AS NEEDED)
     Route: 065
     Dates: start: 20231120
  8. ERYTHROMYCIN [Concomitant]
     Active Substance: ERYTHROMYCIN
     Indication: Skin toxicity
     Dosage: UNK, PRN (AS NEEDED)
     Route: 065
     Dates: start: 20220905, end: 20231102
  9. LEVOTHYROXINE SODIUM [Concomitant]
     Active Substance: LEVOTHYROXINE SODIUM
     Indication: Central hypothyroidism
     Dosage: 137 UG, QD
     Route: 065
  10. MINIRIN [Concomitant]
     Active Substance: DESMOPRESSIN ACETATE
     Indication: Diabetes insipidus
     Dosage: 0.5 DOSAGE FORM, BID (1/2 TABLET AT 1-2 PM AND 1/2 TABLET AROUND 11 PM)
     Route: 065
  11. LEVETIRACETAM [Concomitant]
     Active Substance: LEVETIRACETAM
     Indication: Prophylaxis
     Dosage: 1500 MG, BID
     Route: 065
  12. CORTONE [Concomitant]
     Active Substance: CORTISONE ACETATE
     Indication: Central hypothyroidism
     Dosage: 2.5 DOSAGE FORM (1 TABLET+1 TABLET+1/2 TABLET, DOUBLE IF STRESS OR FEVER)
     Route: 048
  13. CORTONE [Concomitant]
     Active Substance: CORTISONE ACETATE
     Indication: Stress
  14. CORTONE [Concomitant]
     Active Substance: CORTISONE ACETATE
     Indication: Pyrexia
  15. HYDROCORTISONE SODIUM SUCCINATE [Concomitant]
     Active Substance: HYDROCORTISONE SODIUM SUCCINATE
     Indication: Product used for unknown indication
     Dosage: 100 MG
     Route: 030
  16. ALLOPURINOL [Concomitant]
     Active Substance: ALLOPURINOL
     Indication: Hyperuricaemia
     Dosage: 300 MG, QD
     Route: 065
  17. ACETAMINOPHEN [Concomitant]
     Active Substance: ACETAMINOPHEN
     Indication: Pyrexia
     Dosage: 1000 MG, PRN, MAXIMUM 3 TIMES A DAY
     Route: 065
  18. ACETAMINOPHEN [Concomitant]
     Active Substance: ACETAMINOPHEN
     Indication: Pain
  19. MIDAZOLAM [Concomitant]
     Active Substance: MIDAZOLAM
     Indication: Seizure
     Dosage: 10 MG, PRN
     Route: 048

REACTIONS (6)
  - Ventricular hypokinesia [Recovered/Resolved]
  - Diastolic dysfunction [Recovered/Resolved]
  - Ejection fraction decreased [Recovered/Resolved]
  - Rash [Not Recovered/Not Resolved]
  - Eczema [Unknown]
  - Headache [Recovered/Resolved]

NARRATIVE: CASE EVENT DATE: 20221220
